FAERS Safety Report 4937263-X (Version None)
Quarter: 2006Q1

REPORT INFORMATION
  Report Type: 
  Country: None (occurrence: None)
  Receive Date: 20060309
  Receipt Date: 20060301
  Transmission Date: 20060701
  Serious: Yes (Hospitalization)
  Sender: FDA-Public Use
  Company Number: CN-AVENTIS-200611883GDDC

PATIENT
  Age: 70 Year
  Sex: Female

DRUGS (6)
  1. TAXOTERE [Suspect]
     Indication: OVARIAN CANCER
     Route: 042
     Dates: start: 20040601
  2. IFOSFAMIDE [Concomitant]
     Indication: OVARIAN CANCER
     Route: 042
  3. DEXAMETHASONE [Concomitant]
     Indication: CHEMOTHERAPY
     Route: 048
  4. DEXAMETHASONE [Concomitant]
     Route: 030
  5. DIPHENHYDRAMINE [Concomitant]
     Indication: CHEMOTHERAPY
     Route: 030
  6. CIMETIDINE [Concomitant]
     Indication: CHEMOTHERAPY
     Route: 042

REACTIONS (4)
  - ERYTHEMA [None]
  - PAIN [None]
  - PYREXIA [None]
  - SKIN NECROSIS [None]
